FAERS Safety Report 7828484-7 (Version None)
Quarter: 2011Q4

REPORT INFORMATION
  Report Type: 
  Country: None (occurrence: None)
  Receive Date: 20111020
  Receipt Date: 20111013
  Transmission Date: 20120403
  Serious: Yes (Hospitalization, Disabling)
  Sender: FDA-Public Use
  Company Number: US-MERCK-1109USA01919

PATIENT
  Age: 47 Year
  Sex: Female
  Weight: 66 kg

DRUGS (5)
  1. VITAMINS (UNSPECIFIED) [Concomitant]
     Route: 048
     Dates: start: 20000101
  2. ALENDRONATE SODIUM [Suspect]
     Indication: OSTEOPOROSIS
     Route: 048
     Dates: start: 20090409
  3. FOSAMAX [Suspect]
     Indication: OSTEOPENIA
     Route: 048
     Dates: start: 20010101, end: 20100101
  4. ALENDRONATE SODIUM [Suspect]
     Indication: OSTEOPENIA
     Route: 048
     Dates: start: 20090409
  5. FOSAMAX [Suspect]
     Indication: OSTEOPOROSIS
     Route: 048
     Dates: start: 20010101, end: 20100101

REACTIONS (28)
  - FALL [None]
  - PAIN IN EXTREMITY [None]
  - MYALGIA [None]
  - ASTHENIA [None]
  - CYST [None]
  - TENSION HEADACHE [None]
  - DECREASED APPETITE [None]
  - INTERVERTEBRAL DISC DEGENERATION [None]
  - FEMUR FRACTURE [None]
  - OSTEOARTHRITIS [None]
  - VITAMIN D DEFICIENCY [None]
  - DIABETES MELLITUS [None]
  - BRONCHITIS [None]
  - POST-TRAUMATIC STRESS DISORDER [None]
  - HYPOAESTHESIA [None]
  - BONE DISORDER [None]
  - CERUMEN IMPACTION [None]
  - PANIC ATTACK [None]
  - SEASONAL ALLERGY [None]
  - HYPERPARATHYROIDISM PRIMARY [None]
  - DRUG HYPERSENSITIVITY [None]
  - HYPERLIPIDAEMIA [None]
  - JOINT CREPITATION [None]
  - NECK PAIN [None]
  - NAUSEA [None]
  - ANAEMIA [None]
  - ANXIETY [None]
  - URINARY TRACT INFECTION [None]
